FAERS Safety Report 13594064 (Version 2)
Quarter: 2017Q3

REPORT INFORMATION
  Report Type: Spontaneous
  Country: US (occurrence: US)
  Receive Date: 20170530
  Receipt Date: 20170830
  Transmission Date: 20171127
  Serious: Yes (Hospitalization)
  Sender: FDA-Public Use
  Company Number: PHEH2017US015900

PATIENT
  Sex: Female

DRUGS (2)
  1. AFINITOR [Suspect]
     Active Substance: EVEROLIMUS
     Dosage: 7.5 MG, QD
     Route: 048
     Dates: start: 20170824
  2. AFINITOR [Suspect]
     Active Substance: EVEROLIMUS
     Indication: BREAST CANCER FEMALE
     Dosage: 7.5 MG, QD
     Route: 048
     Dates: start: 20160618

REACTIONS (6)
  - Dyspnoea [Recovering/Resolving]
  - Frequent bowel movements [Not Recovered/Not Resolved]
  - Hypertension [Recovering/Resolving]
  - Constipation [Recovered/Resolved]
  - Pneumonia [Recovering/Resolving]
  - Oral pain [Recovering/Resolving]
